FAERS Safety Report 19506464 (Version 1)
Quarter: 2021Q3

REPORT INFORMATION
  Report Type: Spontaneous
  Country: None (occurrence: GB)
  Receive Date: 20210708
  Receipt Date: 20210708
  Transmission Date: 20211014
  Serious: Yes (Other)
  Sender: FDA-Public Use
  Company Number: GB-CHEPLA-2021000102

PATIENT
  Age: 39 Year
  Sex: Male
  Weight: 133.35 kg

DRUGS (6)
  1. NOVORAPID [Concomitant]
     Active Substance: INSULIN ASPART
  2. SERTRALINE [Concomitant]
     Active Substance: SERTRALINE HYDROCHLORIDE
  3. ORLISTAT. [Suspect]
     Active Substance: ORLISTAT
     Indication: WEIGHT DECREASED
     Route: 048
     Dates: start: 20210619, end: 20210622
  4. OZEMPIC [Concomitant]
     Active Substance: SEMAGLUTIDE
  5. TRESIBA [Concomitant]
     Active Substance: INSULIN DEGLUDEC
  6. METFORMIN [Concomitant]
     Active Substance: METFORMIN HYDROCHLORIDE

REACTIONS (1)
  - Stoma complication [Recovered/Resolved]

NARRATIVE: CASE EVENT DATE: 20210620
